FAERS Safety Report 6821158-0 (Version None)
Quarter: 2010Q3

REPORT INFORMATION
  Report Type: 
  Country: None (occurrence: None)
  Receive Date: 20100707
  Receipt Date: 20080131
  Transmission Date: 20110219
  Serious: No
  Sender: FDA-Public Use
  Company Number: US-PFIZER INC-2008010051

PATIENT
  Sex: Female
  Weight: 72.7 kg

DRUGS (5)
  1. ZOLOFT [Suspect]
     Indication: PANIC ATTACK
     Dates: start: 20070801
  2. ZOLOFT [Suspect]
     Indication: ANXIETY
  3. TIMOLOL MALEATE [Concomitant]
  4. MUCINEX [Concomitant]
  5. SUDAFED 12 HOUR [Concomitant]

REACTIONS (2)
  - NASOPHARYNGITIS [None]
  - SINUSITIS [None]
